FAERS Safety Report 7547273-4 (Version None)
Quarter: 2011Q2

REPORT INFORMATION
  Report Type: 
  Country: None (occurrence: None)
  Receive Date: 20110614
  Receipt Date: 20110601
  Transmission Date: 20111010
  Serious: Yes (Other)
  Sender: FDA-Public Use
  Company Number: JP-UCBSA-034543

PATIENT
  Sex: Female

DRUGS (3)
  1. DOXAZOSIN MESYLATE [Concomitant]
     Route: 048
  2. XYZAL [Suspect]
     Route: 048
  3. CANDESARTAN CILEXETIL [Concomitant]
     Route: 048

REACTIONS (1)
  - ELECTROCARDIOGRAM QT PROLONGED [None]
